FAERS Safety Report 15983783 (Version 1)
Quarter: 2019Q1

REPORT INFORMATION
  Report Type: Spontaneous
  Country: AT (occurrence: AT)
  Receive Date: 20190220
  Receipt Date: 20190220
  Transmission Date: 20190418
  Serious: Yes (Other)
  Sender: FDA-Public Use
  Company Number: AT-ACCORD-108149

PATIENT
  Age: 21 Year
  Sex: Female

DRUGS (10)
  1. SERTRALINE [Suspect]
     Active Substance: SERTRALINE HYDROCHLORIDE
     Indication: PRODUCT USED FOR UNKNOWN INDICATION
     Dosage: 200 MG FROM 15-MAR-2018 TO 30-APR-2018
     Dates: start: 20180215, end: 20180314
  2. HALDOL [Suspect]
     Active Substance: HALOPERIDOL
     Indication: PRODUCT USED FOR UNKNOWN INDICATION
     Dates: start: 20180221, end: 20180306
  3. LEPONEX [Suspect]
     Active Substance: CLOZAPINE
     Indication: PRODUCT USED FOR UNKNOWN INDICATION
     Dates: start: 20180319, end: 20180326
  4. CONCOR [Suspect]
     Active Substance: BISOPROLOL FUMARATE
     Indication: PRODUCT USED FOR UNKNOWN INDICATION
     Dates: start: 20180323, end: 20180329
  5. PREGABALIN. [Concomitant]
     Active Substance: PREGABALIN
     Dates: start: 20180213, end: 20180430
  6. TEMESTA [LORAZEPAM] [Concomitant]
     Active Substance: LORAZEPAM
     Dates: start: 20180305, end: 20180322
  7. HALDOL [Suspect]
     Active Substance: HALOPERIDOL
     Indication: PRODUCT USED FOR UNKNOWN INDICATION
     Dosage: 10 MG FROM 13-MAR-2018 TO 14-MAR-2018,20 MG FROM 21-FEB-2018 TO 06-MAR-2018
     Dates: start: 20180306, end: 20180313
  8. AKINETON [Concomitant]
     Active Substance: BIPERIDEN HYDROCHLORIDE
     Dates: start: 20180227, end: 20180313
  9. PRAXITEN [Concomitant]
     Active Substance: OXAZEPAM
     Dates: start: 20180322, end: 20180402
  10. HALDOL [Suspect]
     Active Substance: HALOPERIDOL
     Indication: PRODUCT USED FOR UNKNOWN INDICATION
     Dates: start: 20180313, end: 20180314

REACTIONS (2)
  - Urinary retention [Recovered/Resolved]
  - Electrocardiogram QT prolonged [Recovered/Resolved]

NARRATIVE: CASE EVENT DATE: 20180311
